FAERS Safety Report 8577464-5 (Version None)
Quarter: 2012Q3

REPORT INFORMATION
  Report Type: 
  Country: None (occurrence: None)
  Receive Date: 20120807
  Receipt Date: 20120731
  Transmission Date: 20120928
  Serious: Yes (Hospitalization)
  Sender: FDA-Public Use
  Company Number: US-UCBSA-033398

PATIENT
  Age: 46 Year
  Sex: Male
  Weight: 83.9 kg

DRUGS (2)
  1. KEPPRA XR [Suspect]
     Indication: EPILEPSY
     Dates: start: 20100101
  2. DILANTIN [Concomitant]
     Indication: EPILEPSY
     Dates: start: 20020101

REACTIONS (3)
  - HIP FRACTURE [None]
  - CONVULSION [None]
  - FALL [None]
